FAERS Safety Report 16289895 (Version 1)
Quarter: 2019Q2

REPORT INFORMATION
  Report Type: Spontaneous
  Country: US (occurrence: US)
  Receive Date: 20190508
  Receipt Date: 20190508
  Transmission Date: 20190711
  Serious: No
  Sender: FDA-Public Use
  Company Number: None

PATIENT
  Age: 64 Year
  Sex: Male
  Weight: 107 kg

DRUGS (9)
  1. METOPROLOL TARTRATE 50 MG BID [Concomitant]
  2. EMPAGLIFLOZIN [Suspect]
     Active Substance: EMPAGLIFLOZIN
     Indication: TYPE 2 DIABETES MELLITUS
     Route: 048
     Dates: start: 20190501, end: 20190505
  3. ASPIRIN 325 MG [Concomitant]
     Active Substance: ASPIRIN
  4. IRBESARTAN 300 MG DAILY [Concomitant]
  5. NIACIN 500 MG [Concomitant]
  6. LEVEMIR 70 UNITS BID [Concomitant]
  7. NOVOLOG 12 UNITS TID [Concomitant]
  8. VICTOZA 1.8 MG SQ DAILY [Concomitant]
  9. OMEGA 3 [Concomitant]
     Active Substance: OMEGA-3 FATTY ACIDS

REACTIONS (1)
  - Urticaria [None]

NARRATIVE: CASE EVENT DATE: 20190508
